FAERS Safety Report 7071411-3 (Version None)
Quarter: 2010Q4

REPORT INFORMATION
  Report Type: 
  Country: None (occurrence: None)
  Receive Date: 20101029
  Receipt Date: 20100223
  Transmission Date: 20110411
  Serious: Yes (Hospitalization)
  Sender: FDA-Public Use
  Company Number: A0786721A

PATIENT
  Sex: Female

DRUGS (8)
  1. ADVAIR DISKUS 100/50 [Suspect]
     Indication: PRODUCT USED FOR UNKNOWN INDICATION
     Route: 055
  2. SEREVENT [Suspect]
     Indication: PRODUCT USED FOR UNKNOWN INDICATION
     Route: 055
  3. ALBUTEROL [Concomitant]
  4. MONTELUKAST [Concomitant]
  5. FLUTICASONE PROPIONATE [Concomitant]
  6. FORMOTEROL FUMARATE [Concomitant]
  7. BECLOMETHASONE DIPROPIONATE [Concomitant]
  8. MOMETASONE FUROATE [Concomitant]

REACTIONS (7)
  - ASTHMA [None]
  - BRONCHOSPASM [None]
  - DYSPNOEA [None]
  - RESPIRATORY DISTRESS [None]
  - RESPIRATORY FAILURE [None]
  - RESPIRATORY TRACT INFECTION [None]
  - WHEEZING [None]
